FAERS Safety Report 4972842-5 (Version None)
Quarter: 2006Q2

REPORT INFORMATION
  Report Type: 
  Country: None (occurrence: None)
  Receive Date: 20060410
  Receipt Date: 20060404
  Transmission Date: 20061013
  Serious: Yes (Hospitalization)
  Sender: FDA-Public Use
  Company Number: ZYD-AE-06-023

PATIENT
  Age: 44 Year
  Sex: Male

DRUGS (5)
  1. RIBAVIRIN [Suspect]
     Indication: HEPATITIS C
     Dosage: 2 CAPSULES, BID; ORAL
     Route: 048
     Dates: end: 20060316
  2. PEGASYS [Suspect]
     Indication: HEPATITIS C
     Dosage: 180MCG-1XW
     Dates: start: 20051015, end: 20060228
  3. SUFASALAZINE [Concomitant]
  4. VITAMIN NOS [Concomitant]
  5. MILK THISTLE (SILYBUM MARIANUM) [Concomitant]

REACTIONS (9)
  - CARBON DIOXIDE INCREASED [None]
  - COMA [None]
  - DIZZINESS [None]
  - FATIGUE [None]
  - HAEMATOCRIT DECREASED [None]
  - HAEMOGLOBIN DECREASED [None]
  - RED BLOOD CELL COUNT DECREASED [None]
  - SINUSITIS [None]
  - WHITE BLOOD CELL COUNT DECREASED [None]
